FAERS Safety Report 20033666 (Version 1)
Quarter: 2021Q4

REPORT INFORMATION
  Report Type: Spontaneous
  Country: US (occurrence: US)
  Receive Date: 20211104
  Receipt Date: 20211104
  Transmission Date: 20220304
  Serious: Yes (Death, Hospitalization)
  Sender: FDA-Public Use
  Company Number: US-drreddys-LIT/USA/21/0143459

PATIENT
  Age: 34 Year
  Sex: Female

DRUGS (1)
  1. FENTANYL CITRATE [Suspect]
     Active Substance: FENTANYL CITRATE
     Indication: Product used for unknown indication

REACTIONS (7)
  - Toxicity to various agents [Fatal]
  - Toxicity to various agents [Unknown]
  - Depressed level of consciousness [Unknown]
  - Seizure [Unknown]
  - Anion gap [Unknown]
  - Leukocytosis [Unknown]
  - Respiratory depression [Unknown]
